FAERS Safety Report 5406919-7 (Version None)
Quarter: 2007Q3

REPORT INFORMATION
  Report Type: 
  Country: None (occurrence: None)
  Receive Date: 20070802
  Receipt Date: 20070718
  Transmission Date: 20080115
  Serious: Yes (Disabling)
  Sender: FDA-Public Use
  Company Number: 159037ISR

PATIENT
  Age: 87 Year
  Sex: Male

DRUGS (3)
  1. DOXYCYCLINE [Suspect]
     Dosage: ORAL
     Route: 048
     Dates: start: 20070401, end: 20070601
  2. FUSIDIC ACID [Suspect]
     Indication: OSTEOMYELITIS
     Dosage: ORAL
     Route: 048
     Dates: start: 20070101, end: 20070601
  3. TEICOPLANIN [Suspect]
     Indication: OSTEOMYELITIS
     Dosage: (400 GRAM) INTRAVENOUS (NOT OTHERWISE SPECIFIED)
     Route: 042
     Dates: start: 20070101, end: 20070201

REACTIONS (5)
  - CONDITION AGGRAVATED [None]
  - CONFUSIONAL STATE [None]
  - HALLUCINATION, VISUAL [None]
  - INTERVERTEBRAL DISC DISORDER [None]
  - OSTEOMYELITIS [None]
